FAERS Safety Report 4624423-0 (Version None)
Quarter: 2005Q1

REPORT INFORMATION
  Report Type: 
  Country: None (occurrence: None)
  Receive Date: 20050330
  Receipt Date: 20050330
  Transmission Date: 20050727
  Serious: Yes (Life-Threatening, Hospitalization)
  Sender: FDA-Public Use
  Company Number: None

PATIENT
  Sex: Male
  Weight: 125 kg

DRUGS (8)
  1. HUMIRA [Suspect]
     Indication: RHEUMATOID ARTHRITIS
     Dates: start: 20040801, end: 20050101
  2. COUMADIN [Concomitant]
  3. ZANTAC [Concomitant]
  4. AZULFIDINE [Concomitant]
  5. SODIUM BICARBONATE [Concomitant]
  6. OXYCODONE HCL [Concomitant]
  7. LOPRESSOR [Concomitant]
  8. ZOLFOT [Concomitant]

REACTIONS (1)
  - PANCYTOPENIA [None]
